FAERS Safety Report 23849833 (Version 1)
Quarter: 2024Q2

REPORT INFORMATION
  Report Type: Spontaneous
  Country: US (occurrence: None)
  Receive Date: 20240512
  Receipt Date: 20240512
  Transmission Date: 20240716
  Serious: Yes (Life-Threatening, Other)
  Sender: FDA-Public Use
  Company Number: None

PATIENT
  Age: 32 Year
  Sex: Female
  Weight: 76.95 kg

DRUGS (6)
  1. EPINEPHRINE\LIDOCAINE\PRILOCAINE [Suspect]
     Active Substance: EPINEPHRINE\LIDOCAINE\PRILOCAINE
     Indication: Anaesthesia procedure
     Dosage: OTHER QUANTITY : 1 TUBE;?OTHER FREQUENCY : ONE TIME USE;?
     Route: 061
     Dates: start: 20240504
  2. PREDNISONE [Concomitant]
  3. Benadryl [Concomitant]
  4. SILVER SULFADIAZINE [Concomitant]
     Active Substance: SILVER SULFADIAZINE
  5. ADVIL [Concomitant]
     Active Substance: IBUPROFEN
  6. TYLENOL [Concomitant]
     Active Substance: ACETAMINOPHEN

REACTIONS (3)
  - Chemical burn of skin [None]
  - Drug hypersensitivity [None]
  - Application site reaction [None]

NARRATIVE: CASE EVENT DATE: 20240504
